FAERS Safety Report 5432227-4 (Version None)
Quarter: 2007Q3

REPORT INFORMATION
  Report Type: 
  Country: None (occurrence: None)
  Receive Date: 20070830
  Receipt Date: 20070821
  Transmission Date: 20080115
  Serious: Yes (Hospitalization)
  Sender: FDA-Public Use
  Company Number: CH-PFIZER INC-2007068811

PATIENT
  Age: 42 Year
  Sex: Male

DRUGS (4)
  1. CELEBREX [Suspect]
     Indication: RHEUMATOID ARTHRITIS
     Dosage: DAILY DOSE:200MG
     Route: 048
  2. METHOTREXATE [Suspect]
     Indication: RHEUMATOID ARTHRITIS
     Dosage: DAILY DOSE:10MG
     Route: 048
     Dates: start: 20070630, end: 20070709
  3. HELIXATE [Concomitant]
  4. FOLVITE [Concomitant]
     Dosage: DAILY DOSE:5MG
     Route: 048

REACTIONS (2)
  - DRUG ADMINISTRATION ERROR [None]
  - HEPATOCELLULAR DAMAGE [None]
